FAERS Safety Report 6872786-8 (Version None)
Quarter: 2010Q3

REPORT INFORMATION
  Report Type: 
  Country: None (occurrence: None)
  Receive Date: 20100723
  Receipt Date: 20100715
  Transmission Date: 20110219
  Serious: Yes (Other)
  Sender: FDA-Public Use
  Company Number: GB-AMGEN-QUU425622

PATIENT
  Age: 66 Year
  Sex: Male
  Weight: 105 kg

DRUGS (3)
  1. ENBREL [Suspect]
     Indication: PSORIASIS
     Route: 058
     Dates: start: 20080201
  2. SYNALAR [Concomitant]
     Dosage: UNKNOWN
     Route: 061
     Dates: start: 20060101
  3. SIMVASTATIN [Concomitant]
     Indication: HYPERCHOLESTEROLAEMIA
     Dosage: 20 MG (FREQUENCY UNKNOWN)
     Route: 048
     Dates: start: 20070724

REACTIONS (2)
  - CARCINOID TUMOUR OF THE DUODENUM [None]
  - DISEASE RECURRENCE [None]
